FAERS Safety Report 11019933 (Version 2)
Quarter: 2015Q2

REPORT INFORMATION
  Report Type: Spontaneous
  Country: US (occurrence: US)
  Receive Date: 20150412
  Receipt Date: 20150525
  Transmission Date: 20150821
  Serious: No
  Sender: FDA-Public Use
  Company Number: US-JNJFOC-20130110975

PATIENT
  Age: 45 Year
  Sex: Female
  Weight: 49.44 kg

DRUGS (1)
  1. LEVAQUIN [Suspect]
     Active Substance: LEVOFLOXACIN
     Indication: MASTITIS
     Route: 048
     Dates: start: 20130114, end: 20130116

REACTIONS (3)
  - Dizziness [Recovering/Resolving]
  - Headache [Recovering/Resolving]
  - Tremor [Recovering/Resolving]

NARRATIVE: CASE EVENT DATE: 20130116
